FAERS Safety Report 7643065-6 (Version None)
Quarter: 2011Q3

REPORT INFORMATION
  Report Type: 
  Country: None (occurrence: None)
  Receive Date: 20110728
  Receipt Date: 20110725
  Transmission Date: 20111222
  Serious: Yes (Death)
  Sender: FDA-Public Use
  Company Number: US-GILEAD-2011-0040307

PATIENT
  Sex: Female

DRUGS (2)
  1. LETAIRIS [Suspect]
     Indication: PULMONARY HYPERTENSION
     Route: 048
     Dates: start: 20110223, end: 20110603
  2. ADCIRCA [Concomitant]

REACTIONS (2)
  - PULMONARY HYPERTENSION [None]
  - CARDIO-RESPIRATORY ARREST [None]
